FAERS Safety Report 7301068-5 (Version None)
Quarter: 2011Q1

REPORT INFORMATION
  Report Type: 
  Country: None (occurrence: None)
  Receive Date: 20110218
  Receipt Date: 20110208
  Transmission Date: 20110831
  Serious: Yes (Death)
  Sender: FDA-Public Use
  Company Number: US-MYLANLABS-2011S1002666

PATIENT
  Age: 51 Year
  Sex: Female

DRUGS (2)
  1. CLONIDINE HYDROCHLORIDE [Suspect]
     Indication: BLOOD PRESSURE INCREASED
     Route: 048
  2. DOXAZOSIN TABLETS [Suspect]
     Indication: BLOOD PRESSURE INCREASED
     Route: 048

REACTIONS (1)
  - CEREBROVASCULAR ACCIDENT [None]
